FAERS Safety Report 8048943-4 (Version None)
Quarter: 2012Q1

REPORT INFORMATION
  Report Type: 
  Country: None (occurrence: None)
  Receive Date: 20120117
  Receipt Date: 20120112
  Transmission Date: 20120608
  Serious: No
  Sender: FDA-Public Use
  Company Number: US-PFIZER INC-2012009891

PATIENT
  Sex: Female
  Weight: 77.1 kg

DRUGS (6)
  1. EVISTA [Suspect]
     Indication: BREAST CANCER
  2. ESTRING [Suspect]
     Indication: OFF LABEL USE
     Dosage: 2 MG, UNK
     Route: 067
     Dates: start: 20111206
  3. ESTRING [Suspect]
     Indication: PELVIC PAIN
  4. EVISTA [Suspect]
     Indication: OSTEOPOROSIS
     Dosage: 60 MG, 1X/DAY
     Route: 048
     Dates: start: 20030101
  5. NEXIUM [Concomitant]
     Dosage: UNK
  6. SIMVASTATIN [Concomitant]
     Dosage: UNK

REACTIONS (1)
  - DRUG EFFECT DELAYED [None]
